FAERS Safety Report 6736909-3 (Version None)
Quarter: 2010Q2

REPORT INFORMATION
  Report Type: 
  Country: None (occurrence: None)
  Receive Date: 20100521
  Receipt Date: 20100513
  Transmission Date: 20101027
  Serious: Yes (Other)
  Sender: FDA-Public Use
  Company Number: US-AMGEN-QUU412290

PATIENT
  Sex: Female

DRUGS (2)
  1. EPOGEN [Suspect]
     Indication: DIALYSIS
     Dates: start: 20070101
  2. UNSPECIFIED ANTICOAGULANT [Concomitant]

REACTIONS (7)
  - BONE TRIMMING [None]
  - CENTRAL AUDITORY PROCESSING DISORDER [None]
  - HYPOAESTHESIA [None]
  - IMPAIRED HEALING [None]
  - MUSCULAR WEAKNESS [None]
  - TINNITUS [None]
  - TOE OPERATION [None]
